FAERS Safety Report 24689095 (Version 1)
Quarter: 2024Q4

REPORT INFORMATION
  Report Type: Spontaneous
  Country: IN (occurrence: IN)
  Receive Date: 20241203
  Receipt Date: 20241203
  Transmission Date: 20250115
  Serious: Yes (Hospitalization, Other)
  Sender: VIIV
  Company Number: IN-ViiV Healthcare-IN2024GSK150164

PATIENT

DRUGS (3)
  1. ZIDOVUDINE [Suspect]
     Active Substance: ZIDOVUDINE
     Indication: HIV infection
     Dosage: 300 MG, BID
  2. DOLUTEGRAVIR [Suspect]
     Active Substance: DOLUTEGRAVIR
     Indication: HIV infection
     Dosage: 50 MG, 1D
  3. LAMIVUDINE [Suspect]
     Active Substance: LAMIVUDINE
     Indication: HIV infection
     Dosage: 150 MG, BID

REACTIONS (1)
  - Lipohypertrophy [Recovering/Resolving]
